FAERS Safety Report 11215947 (Version 1)
Quarter: 2015Q2

REPORT INFORMATION
  Report Type: Spontaneous
  Country: US (occurrence: None)
  Receive Date: 20150623
  Receipt Date: 20150623
  Transmission Date: 20150821
  Serious: Yes (Hospitalization)
  Sender: FDA-Public Use
  Company Number: None

PATIENT
  Age: 64 Year
  Sex: Male
  Weight: 66 kg

DRUGS (1)
  1. CYTARABINE. [Suspect]
     Active Substance: CYTARABINE
     Indication: SEPSIS
     Dosage: TOTAL DOSE ADMININSTERED 2640 MG
     Dates: end: 20150614

REACTIONS (5)
  - Febrile neutropenia [None]
  - Productive cough [None]
  - Dizziness [None]
  - Vomiting [None]
  - Bacterial test positive [None]

NARRATIVE: CASE EVENT DATE: 20150619
